FAERS Safety Report 19646777 (Version 1)
Quarter: 2021Q3

REPORT INFORMATION
  Report Type: Spontaneous
  Country: GR (occurrence: GR)
  Receive Date: 20210802
  Receipt Date: 20210802
  Transmission Date: 20211014
  Serious: Yes (Other)
  Sender: FDA-Public Use
  Company Number: GR-PFIZER INC-202100933272

PATIENT
  Age: 78 Year
  Sex: Female
  Weight: 60 kg

DRUGS (17)
  1. NEURONTIN [Suspect]
     Active Substance: GABAPENTIN
     Indication: NERVOUS SYSTEM DISORDER
     Dosage: 300 MILLIGRAM
     Route: 065
     Dates: start: 20210530, end: 20210613
  2. CONCOR [Suspect]
     Active Substance: BISOPROLOL FUMARATE
     Indication: ARRHYTHMIA
     Dosage: 1/2 TABLET EVERY MORNING, AND 1/2 EVERY NIGHT
     Route: 065
  3. CONCOR [Suspect]
     Active Substance: BISOPROLOL FUMARATE
     Indication: CARDIOVASCULAR DISORDER
     Dosage: UNK
  4. LEPUR [Suspect]
     Active Substance: SIMVASTATIN
     Indication: BLOOD CHOLESTEROL
     Dosage: UNK
     Route: 065
  5. INEGY [Suspect]
     Active Substance: EZETIMIBE\SIMVASTATIN
     Dosage: 1 TABLET DAILY AT NIGHT (HS)
     Route: 048
     Dates: start: 2019, end: 20210417
  6. NEXIUM I.V. [Suspect]
     Active Substance: ESOMEPRAZOLE SODIUM
     Dosage: UNK
     Route: 065
  7. INEGY [Suspect]
     Active Substance: EZETIMIBE\SIMVASTATIN
     Dosage: UNK
     Route: 048
  8. MAXUDIN [Suspect]
     Active Substance: PRAVASTATIN SODIUM
     Indication: BLOOD CHOLESTEROL INCREASED
     Dosage: 40 MG, HALF AT NIGHT
     Route: 065
     Dates: start: 20210530, end: 20210613
  9. COSOPT [Suspect]
     Active Substance: DORZOLAMIDE HYDROCHLORIDE\TIMOLOL MALEATE
     Indication: GLAUCOMA
     Dosage: 20 MG MONODOSE EYE DROPS FOR A MONTH AT NIGHT
     Route: 065
  10. LEXOTANIL [Suspect]
     Active Substance: BROMAZEPAM
     Dosage: UNK
     Route: 065
  11. VITAMIN D [ERGOCALCIFEROL] [Suspect]
     Active Substance: ERGOCALCIFEROL
     Dosage: UNK
     Route: 065
  12. EVIOL [Suspect]
     Active Substance: TOCOPHEROL
     Dosage: 1 DF, 1X/DAY (1 IN THE MORNING AFTER BREAKFAST)
     Route: 065
     Dates: start: 20210530, end: 20210613
  13. BEPANTHOL [DEXPANTHENOL] [Suspect]
     Active Substance: DEXPANTHENOL
     Indication: PRURITUS
     Dosage: UNK
     Route: 065
  14. DEPON [Suspect]
     Active Substance: ACETAMINOPHEN
     Indication: BACK PAIN
     Dosage: UNK
     Route: 065
  15. ZODIN (OMEGA?3?ACID ETHYL ESTERS) [Suspect]
     Active Substance: OMEGA-3-ACID ETHYL ESTERS
     Indication: BLOOD TRIGLYCERIDES
     Dosage: 1 DF, ONCE A DAY (ONE AT NOON AFTER LUNCH)
     Route: 065
     Dates: start: 20210530, end: 20210613
  16. COVERSYL [PERINDOPRIL ARGININE] [Suspect]
     Active Substance: PERINDOPRIL ARGININE
     Indication: ARRHYTHMIA
     Dosage: UNK, DAILY IN THE MORNING (QD)
     Route: 065
  17. COVERSYL [PERINDOPRIL ARGININE] [Suspect]
     Active Substance: PERINDOPRIL ARGININE
     Indication: CARDIOVASCULAR DISORDER
     Dosage: UNK

REACTIONS (24)
  - Nausea [Unknown]
  - Psoriasis [Unknown]
  - Myalgia [Recovering/Resolving]
  - Anxiety [Recovered/Resolved]
  - Blood cholesterol increased [Unknown]
  - Muscular weakness [Unknown]
  - Loss of consciousness [Unknown]
  - Blood triglycerides increased [Unknown]
  - Tooth fracture [Unknown]
  - Blood glucose abnormal [Unknown]
  - Product dose omission issue [Unknown]
  - Vomiting [Unknown]
  - Muscle swelling [Unknown]
  - Dizziness [Unknown]
  - Alopecia [Unknown]
  - Kyphosis [Unknown]
  - Arthralgia [Recovering/Resolving]
  - Abnormal dreams [Recovered/Resolved]
  - Arrhythmia [Unknown]
  - Gastrointestinal disorder [Unknown]
  - Musculoskeletal discomfort [Unknown]
  - Syncope [Unknown]
  - Adverse event [Unknown]
  - Osteopenia [Unknown]

NARRATIVE: CASE EVENT DATE: 20210611
